FAERS Safety Report 21154244 (Version 1)
Quarter: 2022Q3

REPORT INFORMATION
  Report Type: Spontaneous
  Country: US (occurrence: US)
  Receive Date: 20220801
  Receipt Date: 20220801
  Transmission Date: 20221027
  Serious: Yes (Other)
  Sender: FDA-Public Use
  Company Number: US-TEVA-2022-US-2059104

PATIENT
  Age: 62 Year
  Sex: Female
  Weight: 74.84 kg

DRUGS (3)
  1. CLONAZEPAM [Suspect]
     Active Substance: CLONAZEPAM
     Indication: Product used for unknown indication
     Route: 065
  2. Meclazine [Concomitant]
     Indication: Vertigo
     Dosage: AS NEEDED
  3. BENADRYL [Concomitant]
     Active Substance: DIPHENHYDRAMINE HYDROCHLORIDE
     Indication: Vertigo
     Dosage: AS NEEDED

REACTIONS (4)
  - Myocardial infarction [Unknown]
  - Hypersensitivity [Unknown]
  - Product use in unapproved indication [Unknown]
  - Wrong technique in product usage process [Unknown]
